FAERS Safety Report 16410733 (Version 1)
Quarter: 2019Q3

REPORT INFORMATION
  Report Type: Spontaneous
  Country: US (occurrence: US)
  Receive Date: 20190608
  Receipt Date: 20190608
  Transmission Date: 20191004
  Serious: Yes (Life-Threatening, Disabling, Other)
  Sender: FDA-Public Use
  Company Number: None

PATIENT
  Age: 58 Year
  Sex: Female
  Weight: 74.25 kg

DRUGS (1)
  1. WIXELA INHUB [Suspect]
     Active Substance: FLUTICASONE PROPIONATE\SALMETEROL XINAFOATE
     Indication: ASTHMA
     Dosage: ?          OTHER STRENGTH:100-50;QUANTITY:1 PUFF(S);?
     Route: 048
     Dates: start: 20190501, end: 20190607

REACTIONS (3)
  - Quality of life decreased [None]
  - Asthma [None]
  - Product substitution issue [None]

NARRATIVE: CASE EVENT DATE: 20190603
